FAERS Safety Report 8805210 (Version 1)
Quarter: 2012Q4

REPORT INFORMATION
  Report Type: 
  Country: BR (occurrence: BR)
  Receive Date: 20120924
  Receipt Date: 20120924
  Transmission Date: 20130627
  Serious: Yes (Other)
  Sender: FDA-Public Use
  Company Number: PHHY2012BR081887

PATIENT
  Age: 58 Year

DRUGS (4)
  1. GALVUS MET [Suspect]
     Dosage: 1 DF (1000mg metf/ 50mg vilda), before breakfast
  2. SOTALOL [Suspect]
     Dosage: UNK UKN, UNK
  3. SOTALOL [Suspect]
     Dosage: 80 mg, QD
  4. METFORMIN [Concomitant]
     Dosage: 1 g (500 mg after lunch and dinner) daily

REACTIONS (4)
  - Thalassaemia trait [Recovering/Resolving]
  - Left ventricular hypertrophy [Recovering/Resolving]
  - Liver disorder [Recovering/Resolving]
  - Malabsorption [Recovering/Resolving]
